FAERS Safety Report 8377921-0 (Version None)
Quarter: 2012Q2

REPORT INFORMATION
  Report Type: 
  Country: None (occurrence: None)
  Receive Date: 20120522
  Receipt Date: 20120508
  Transmission Date: 20120825
  Serious: Yes (Other)
  Sender: FDA-Public Use
  Company Number: US-ELI_LILLY_AND_COMPANY-US201205003727

PATIENT
  Age: 74 Year
  Sex: Female

DRUGS (9)
  1. CYMBALTA [Suspect]
     Indication: PAIN
     Dosage: 60 MG, QD
  2. ACETAMINOPHEN [Concomitant]
  3. DIAZEPAM [Concomitant]
  4. CYMBALTA [Suspect]
     Dosage: 60 MG, QOD
  5. THYROID HORMONES [Concomitant]
  6. CYMBALTA [Suspect]
     Dosage: UNK, UNKNOWN
     Dates: end: 20120429
  7. NEXIUM [Concomitant]
  8. CYMBALTA [Suspect]
     Dosage: 30 MG, QD
  9. CYMBALTA [Suspect]
     Dosage: 30 MG, QOD

REACTIONS (12)
  - MENTAL IMPAIRMENT [None]
  - DRUG INEFFECTIVE [None]
  - PARAESTHESIA [None]
  - HEADACHE [None]
  - CRYING [None]
  - INSOMNIA [None]
  - TENSION [None]
  - DRUG WITHDRAWAL SYNDROME [None]
  - SUICIDAL IDEATION [None]
  - ANGER [None]
  - VERTIGO [None]
  - WRONG TECHNIQUE IN DRUG USAGE PROCESS [None]
